FAERS Safety Report 24725514 (Version 1)
Quarter: 2024Q4

REPORT INFORMATION
  Report Type: Spontaneous
  Country: JP (occurrence: JP)
  Receive Date: 20241212
  Receipt Date: 20241212
  Transmission Date: 20250114
  Serious: Yes (Other)
  Sender: RANBAXY
  Company Number: JP-SUN PHARMACEUTICAL INDUSTRIES LTD-2024RR-483697

PATIENT
  Age: 48 Year
  Sex: Male

DRUGS (1)
  1. GEMCITABINE [Suspect]
     Active Substance: GEMCITABINE
     Indication: Biliary cancer metastatic
     Dosage: 1000 MILLIGRAM/SQ. METER
     Route: 065

REACTIONS (4)
  - Therapy partial responder [Unknown]
  - Rash [Unknown]
  - Neutropenia [Unknown]
  - Disease progression [Unknown]
